FAERS Safety Report 10482789 (Version 1)
Quarter: 2014Q3

REPORT INFORMATION
  Report Type: Spontaneous
  Country: US (occurrence: US)
  Receive Date: 20140929
  Receipt Date: 20140929
  Transmission Date: 20150326
  Serious: Yes (Death)
  Sender: FDA-Public Use
  Company Number: US-CELGENE-163-POMAL-14093220

PATIENT
  Age: 70 Year
  Sex: Female

DRUGS (4)
  1. POMALYST [Suspect]
     Active Substance: POMALIDOMIDE
     Indication: PLASMA CELL MYELOMA
     Route: 048
     Dates: start: 201304
  2. POMALYST [Suspect]
     Active Substance: POMALIDOMIDE
     Route: 048
     Dates: start: 201305
  3. POMALYST [Suspect]
     Active Substance: POMALIDOMIDE
     Dosage: 1-2MG
     Route: 048
     Dates: start: 201312
  4. POMALYST [Suspect]
     Active Substance: POMALIDOMIDE
     Route: 048
     Dates: start: 201402

REACTIONS (1)
  - Death [Fatal]

NARRATIVE: CASE EVENT DATE: 20140906
